FAERS Safety Report 9131028 (Version 3)
Quarter: 2013Q1

REPORT INFORMATION
  Report Type: Report from Study
  Country: CH (occurrence: CH)
  Receive Date: 20130301
  Receipt Date: 20130321
  Transmission Date: 20140127
  Serious: Yes (Other)
  Sender: FDA-Public Use
  Company Number: CH-PFIZER INC-2013063604

PATIENT
  Age: 46 Year
  Sex: Female

DRUGS (5)
  1. AROMASIN [Suspect]
     Indication: INVASIVE DUCTAL BREAST CARCINOMA
     Dosage: UNK
     Dates: start: 2009, end: 20100204
  2. ALMOGRAN [Concomitant]
     Indication: MIGRAINE
     Dosage: 12.5 MG, AS NEEDED
  3. DAFALGAN [Concomitant]
     Indication: PAIN
     Dosage: 500 MG, AS NEEDED
  4. CALCIMAGON-D3 [Concomitant]
     Dosage: 500 MG, 1X/DAY (IN THE MORNING)
  5. MAGNESIOCARD [Concomitant]
     Dosage: 5 MMOL, 1X/DAY (IN THE MORNING)

REACTIONS (1)
  - Migraine [Not Recovered/Not Resolved]
